FAERS Safety Report 9539875 (Version 1)
Quarter: 2013Q2

REPORT INFORMATION
  Report Type: Spontaneous
  Country: US (occurrence: None)
  Receive Date: 20130521
  Receipt Date: 20130521
  Transmission Date: 20140414
  Serious: No
  Sender: FDA-Public Use
  Company Number: 1000042653

PATIENT
  Sex: Female

DRUGS (1)
  1. TUDORZA PRESSAIR [Suspect]
     Dosage: RESPIRATORY (INHALATION)?
     Route: 055

REACTIONS (2)
  - Urticaria [None]
  - Platelet count [None]
